FAERS Safety Report 4400472-2 (Version None)
Quarter: 2004Q3

REPORT INFORMATION
  Report Type: 
  Country: None (occurrence: None)
  Receive Date: 20040714
  Receipt Date: 20040628
  Transmission Date: 20050211
  Serious: Yes (Hospitalization, Other)
  Sender: FDA-Public Use
  Company Number: USA040671288

PATIENT
  Age: 65 Year
  Sex: Female

DRUGS (9)
  1. EVISTA [Suspect]
     Dates: start: 20020101, end: 20020101
  2. FORTEO [Suspect]
     Dates: start: 20040607
  3. PREDNISONE [Concomitant]
  4. PRILOSEC [Concomitant]
  5. TOLECTIN [Concomitant]
  6. THEO-DUR [Concomitant]
  7. INFLIXIMAB [Concomitant]
  8. ENBREL [Concomitant]
  9. ARAVA [Concomitant]

REACTIONS (10)
  - CHEST DISCOMFORT [None]
  - DEHYDRATION [None]
  - DIZZINESS [None]
  - DYSPNOEA [None]
  - FEELING ABNORMAL [None]
  - NAUSEA [None]
  - PHARMACEUTICAL PRODUCT COMPLAINT [None]
  - PHOBIA OF DRIVING [None]
  - RHEUMATOID ARTHRITIS [None]
  - VOMITING [None]
